FAERS Safety Report 8039972-5 (Version None)
Quarter: 2012Q1

REPORT INFORMATION
  Report Type: 
  Country: None (occurrence: None)
  Receive Date: 20120111
  Receipt Date: 20111222
  Transmission Date: 20120608
  Serious: No
  Sender: FDA-Public Use
  Company Number: US-AMGEN-USASP2011061192

PATIENT
  Age: 55 Year
  Sex: Female
  Weight: 83.447 kg

DRUGS (5)
  1. FISH OIL [Concomitant]
  2. ANTACIDS [Concomitant]
  3. MTX                                /00113801/ [Concomitant]
  4. CELEBREX [Concomitant]
  5. ENBREL [Suspect]
     Indication: RHEUMATOID ARTHRITIS
     Dosage: 50 MG, QWK
     Dates: start: 20090901

REACTIONS (11)
  - HYPOAESTHESIA [None]
  - OEDEMA PERIPHERAL [None]
  - PAIN [None]
  - FIBROMYALGIA [None]
  - OROPHARYNGEAL PAIN [None]
  - PAIN IN EXTREMITY [None]
  - ASPARTATE AMINOTRANSFERASE INCREASED [None]
  - COUGH [None]
  - OSTEOARTHRITIS [None]
  - PYREXIA [None]
  - PARAESTHESIA [None]
